FAERS Safety Report 4442307-8 (Version None)
Quarter: 2004Q3

REPORT INFORMATION
  Report Type: 
  Country: None (occurrence: None)
  Receive Date: 20040903
  Receipt Date: 20040811
  Transmission Date: 20050211
  Serious: Yes (Other)
  Sender: FDA-Public Use
  Company Number: 2004UW14687

PATIENT
  Age: 46 Year
  Sex: Male
  Weight: 194.1395 kg

DRUGS (5)
  1. CRESTOR [Suspect]
     Indication: DYSLIPIDAEMIA
     Dosage: 10 MG QD PO
     Route: 048
     Dates: start: 20040421
  2. COZAAR [Concomitant]
  3. VIAGRA [Concomitant]
  4. ACTOS [Concomitant]
  5. GLUCOVANCE [Concomitant]

REACTIONS (4)
  - ABNORMAL FAECES [None]
  - ARTHRALGIA [None]
  - SKIN ODOUR ABNORMAL [None]
  - URINE ODOUR ABNORMAL [None]
